FAERS Safety Report 5908771-X (Version None)
Quarter: 2008Q4

REPORT INFORMATION
  Report Type: 
  Country: None (occurrence: None)
  Receive Date: 20081006
  Receipt Date: 20080926
  Transmission Date: 20090506
  Serious: Yes (Other)
  Sender: FDA-Public Use
  Company Number: PHBS2008US05848

PATIENT
  Age: 4 Month
  Sex: Female

DRUGS (7)
  1. CYCLOSPORINE [Suspect]
     Indication: BONE MARROW TRANSPLANT
  2. CYCLOSPORINE [Suspect]
     Indication: PROPHYLAXIS AGAINST GRAFT VERSUS HOST DISEASE
  3. METHOTREXATE SODIUM [Suspect]
     Indication: PROPHYLAXIS AGAINST GRAFT VERSUS HOST DISEASE
  4. THYMOGLOBULIN [Suspect]
     Indication: PROPHYLAXIS AGAINST GRAFT VERSUS HOST DISEASE
  5. BUSULFAN [Suspect]
     Dosage: 16 MG/KG
  6. CYCLOPHOSPHAMIDE [Suspect]
     Dosage: 100 MG/KG
  7. ETOPOSIDE [Concomitant]
     Dosage: 60 MG/KG

REACTIONS (5)
  - BONE MARROW FAILURE [None]
  - BONE MARROW TRANSPLANT [None]
  - BRONCHOPULMONARY ASPERGILLOSIS [None]
  - GRAFT VERSUS HOST DISEASE [None]
  - PANCYTOPENIA [None]
